FAERS Safety Report 6140187-6 (Version None)
Quarter: 2009Q2

REPORT INFORMATION
  Report Type: 
  Country: None (occurrence: None)
  Receive Date: 20090401
  Receipt Date: 20090327
  Transmission Date: 20091009
  Serious: Yes (Death)
  Sender: FDA-Public Use
  Company Number: IN-SANOFI-SYNTHELABO-D01200808254

PATIENT

DRUGS (8)
  1. CLOPIDOGREL [Suspect]
     Indication: ACUTE CORONARY SYNDROME
     Dosage: 300 MG (+PLACEBO) D1 FOLLOWED BY 75 MG (+PLACEBO) D2 TO D7; 75 MG FROM D8 TO 30
     Route: 048
  2. SODIUM BICARBONATE [Concomitant]
  3. PANTOPRAZOLE SODIUM [Concomitant]
  4. ATORVASTATIN CALCIUM [Concomitant]
  5. RAMIPRIL [Concomitant]
  6. METOPROLOL [Concomitant]
  7. CLOPIDOGREL [Suspect]
     Indication: ACUTE CORONARY SYNDROME
     Dosage: 600 MG LD D1 FOLLOWED BY 150 MG FROM D2 TO D7; 75 MG FROM D8 TO 30
     Route: 048
     Dates: start: 20081110, end: 20081111
  8. ASA LOW DOSE [Concomitant]
     Indication: ACUTE CORONARY SYNDROME
     Dosage: AT LEAST 300 MG D1; 75-100 MG FROM D2 TO D30
     Route: 048
     Dates: start: 20081110, end: 20081111

REACTIONS (3)
  - CARDIAC TAMPONADE [None]
  - DYSPNOEA [None]
  - PERICARDIAL EFFUSION [None]
